FAERS Safety Report 5595426-7 (Version None)
Quarter: 2008Q1

REPORT INFORMATION
  Report Type: 
  Country: None (occurrence: None)
  Receive Date: 20080118
  Receipt Date: 20080109
  Transmission Date: 20080703
  Serious: Yes (Other)
  Sender: FDA-Public Use
  Company Number: US-JNJFOC-20080102782

PATIENT
  Sex: Male
  Weight: 83.46 kg

DRUGS (3)
  1. DURAGESIC-100 [Suspect]
     Indication: MIGRAINE
     Route: 062
  2. DURAGESIC-100 [Suspect]
     Indication: BACK PAIN
     Route: 062
  3. DURAGESIC-100 [Suspect]
     Indication: PAIN
     Route: 062

REACTIONS (11)
  - APPLICATION SITE PAPULES [None]
  - APPLICATION SITE ULCER [None]
  - CLUMSINESS [None]
  - DIZZINESS [None]
  - FEELING ABNORMAL [None]
  - INADEQUATE ANALGESIA [None]
  - MEMORY IMPAIRMENT [None]
  - PALLOR [None]
  - VISUAL DISTURBANCE [None]
  - VOMITING [None]
  - WRONG TECHNIQUE IN DRUG USAGE PROCESS [None]
